FAERS Safety Report 24369489 (Version 3)
Quarter: 2025Q1

REPORT INFORMATION
  Report Type: Spontaneous
  Country: US (occurrence: US)
  Receive Date: 20240927
  Receipt Date: 20250127
  Transmission Date: 20250408
  Serious: Yes (Hospitalization, Other)
  Sender: AUROBINDO
  Company Number: US-AUROBINDO-AUR-APL-2024-047182

PATIENT
  Age: 29 Year
  Sex: Male

DRUGS (30)
  1. ARIPIPRAZOLE [Suspect]
     Active Substance: ARIPIPRAZOLE
     Indication: Autism spectrum disorder
     Route: 065
  2. BUSPIRONE HYDROCHLORIDE [Suspect]
     Active Substance: BUSPIRONE HYDROCHLORIDE
     Indication: Autism spectrum disorder
     Dosage: 5 MILLIGRAM, TWO TIMES A DAY
     Route: 065
  3. CLONAZEPAM [Suspect]
     Active Substance: CLONAZEPAM
     Indication: Autism spectrum disorder
     Route: 065
  4. LORAZEPAM [Suspect]
     Active Substance: LORAZEPAM
     Indication: Autism spectrum disorder
     Route: 065
  5. LORAZEPAM [Suspect]
     Active Substance: LORAZEPAM
     Indication: Catatonia
  6. OLANZAPINE [Suspect]
     Active Substance: OLANZAPINE
     Indication: Autism spectrum disorder
     Route: 065
  7. OLANZAPINE [Suspect]
     Active Substance: OLANZAPINE
     Indication: Intermittent explosive disorder
  8. OLANZAPINE [Suspect]
     Active Substance: OLANZAPINE
     Indication: Paraphilia
  9. OLANZAPINE [Suspect]
     Active Substance: OLANZAPINE
     Indication: Language disorder
  10. OLANZAPINE [Suspect]
     Active Substance: OLANZAPINE
     Indication: Generalised anxiety disorder
  11. OLANZAPINE [Suspect]
     Active Substance: OLANZAPINE
     Indication: Intellectual disability
  12. RISPERIDONE [Suspect]
     Active Substance: RISPERIDONE
     Indication: Autism spectrum disorder
     Route: 065
  13. RISPERIDONE [Suspect]
     Active Substance: RISPERIDONE
     Indication: Generalised anxiety disorder
     Dosage: 1 MILLIGRAM, TWO TIMES A DAY
     Route: 065
  14. RISPERIDONE [Suspect]
     Active Substance: RISPERIDONE
     Indication: Language disorder
     Dosage: 1.5 MILLIGRAM, ONCE A DAY,(0.5 MG DAILY AND 1 MG NIGHTLY AND THEN LATER REDUCED)
     Route: 065
  15. RISPERIDONE [Suspect]
     Active Substance: RISPERIDONE
     Indication: Intermittent explosive disorder
  16. RISPERIDONE [Suspect]
     Active Substance: RISPERIDONE
     Indication: Intellectual disability
  17. RISPERIDONE [Suspect]
     Active Substance: RISPERIDONE
     Indication: Paraphilia
  18. SERTRALINE [Suspect]
     Active Substance: SERTRALINE HYDROCHLORIDE
     Indication: Autism spectrum disorder
     Route: 065
  19. SERTRALINE [Suspect]
     Active Substance: SERTRALINE HYDROCHLORIDE
     Indication: Intellectual disability
  20. SERTRALINE [Suspect]
     Active Substance: SERTRALINE HYDROCHLORIDE
     Indication: Paraphilia
  21. SERTRALINE [Suspect]
     Active Substance: SERTRALINE HYDROCHLORIDE
     Indication: Generalised anxiety disorder
  22. SERTRALINE [Suspect]
     Active Substance: SERTRALINE HYDROCHLORIDE
     Indication: Intermittent explosive disorder
  23. SERTRALINE [Suspect]
     Active Substance: SERTRALINE HYDROCHLORIDE
     Indication: Language disorder
  24. NALTREXONE [Concomitant]
     Active Substance: NALTREXONE
     Indication: Autism spectrum disorder
     Route: 065
  25. VALPROATE [Concomitant]
     Active Substance: VALPROIC ACID
     Indication: Autism spectrum disorder
     Route: 065
  26. VALPROATE [Concomitant]
     Active Substance: VALPROIC ACID
     Indication: Language disorder
  27. VALPROATE [Concomitant]
     Active Substance: VALPROIC ACID
     Indication: Intermittent explosive disorder
  28. VALPROATE [Concomitant]
     Active Substance: VALPROIC ACID
     Indication: Paraphilia
  29. VALPROATE [Concomitant]
     Active Substance: VALPROIC ACID
     Indication: Generalised anxiety disorder
  30. VALPROATE [Concomitant]
     Active Substance: VALPROIC ACID
     Indication: Intellectual disability

REACTIONS (11)
  - Aggression [Recovered/Resolved]
  - Disinhibition [Unknown]
  - Type 2 diabetes mellitus [Not Recovered/Not Resolved]
  - Akathisia [Recovered/Resolved]
  - Gastrointestinal disorder [Recovered/Resolved]
  - Parotitis [Recovered/Resolved]
  - Sedation [Recovered/Resolved]
  - Salivary hypersecretion [Recovered/Resolved]
  - Confusional state [Recovered/Resolved]
  - Hyperammonaemia [Recovered/Resolved]
  - Nausea [Recovered/Resolved]
